FAERS Safety Report 13609711 (Version 1)
Quarter: 2017Q2

REPORT INFORMATION
  Report Type: Spontaneous
  Country: FR (occurrence: FR)
  Receive Date: 20170602
  Receipt Date: 20170602
  Transmission Date: 20170830
  Serious: Yes (Hospitalization)
  Sender: FDA-Public Use
  Company Number: FR-009507513-1705FRA015156

PATIENT
  Age: 70 Year
  Sex: Female

DRUGS (20)
  1. ROVAMYCINE [Suspect]
     Active Substance: SPIRAMYCIN
     Indication: RESPIRATORY TRACT INFECTION
     Dosage: UNK
     Route: 048
     Dates: start: 201701, end: 201702
  2. FLUDARABINE PHOSPHATE. [Suspect]
     Active Substance: FLUDARABINE PHOSPHATE
     Indication: HAEMATOLOGICAL MALIGNANCY
     Dosage: UNK
     Route: 042
     Dates: start: 201605
  3. DESFERAL [Suspect]
     Active Substance: DEFEROXAMINE MESYLATE
     Indication: HAEMATOLOGICAL MALIGNANCY
     Dosage: UNK
     Route: 042
     Dates: start: 201511
  4. NEORAL [Suspect]
     Active Substance: CYCLOSPORINE
     Indication: PROPHYLAXIS AGAINST GRAFT VERSUS HOST DISEASE
     Dosage: UNK
     Route: 048
     Dates: start: 201605
  5. CELLCEPT [Suspect]
     Active Substance: MYCOPHENOLATE MOFETIL\MYCOPHENOLATE MOFETIL HYDROCHLORIDE
     Indication: PROPHYLAXIS AGAINST GRAFT VERSUS HOST DISEASE
     Dosage: UNK
     Route: 048
     Dates: start: 201605, end: 201610
  6. BACTRIM [Suspect]
     Active Substance: SULFAMETHOXAZOLE\TRIMETHOPRIM
     Indication: ANTIBIOTIC PROPHYLAXIS
     Dosage: UNK
     Route: 048
     Dates: start: 201605, end: 201610
  7. CORTANCYL [Suspect]
     Active Substance: PREDNISONE
     Indication: HAEMATOLOGICAL MALIGNANCY
     Dosage: 10 MG, QD
     Route: 048
  8. AUGMENTIN [Suspect]
     Active Substance: AMOXICILLIN\CLAVULANATE POTASSIUM
     Indication: RESPIRATORY TRACT INFECTION
     Dosage: UNK
     Route: 048
     Dates: start: 201701, end: 201702
  9. OFLOCET (OFLOXACIN) [Suspect]
     Active Substance: OFLOXACIN
     Indication: RESPIRATORY TRACT INFECTION
     Dosage: UNK
     Route: 048
     Dates: start: 201701, end: 201702
  10. ZELITREX [Suspect]
     Active Substance: VALACYCLOVIR HYDROCHLORIDE
     Indication: INFECTION PROPHYLAXIS
     Dosage: 1000 MG, QD
     Route: 048
     Dates: start: 201605
  11. BISOCE [Suspect]
     Active Substance: BISOPROLOL
     Indication: HYPERTENSION
     Dosage: 2.5 MG, QD
     Route: 048
  12. NOXAFIL [Suspect]
     Active Substance: POSACONAZOLE
     Indication: INFECTION PROPHYLAXIS
     Dosage: UNK
     Route: 048
     Dates: start: 201605, end: 201606
  13. VIDAZA [Suspect]
     Active Substance: AZACITIDINE
     Indication: HAEMATOLOGICAL MALIGNANCY
     Dosage: UNK
     Route: 042
     Dates: start: 201506, end: 201510
  14. BUSULFAN. [Suspect]
     Active Substance: BUSULFAN
     Indication: HAEMATOLOGICAL MALIGNANCY
     Dosage: UNK
     Route: 042
     Dates: start: 201605
  15. PANTOPRAZOLE [Suspect]
     Active Substance: PANTOPRAZOLE
     Indication: PRODUCT USED FOR UNKNOWN INDICATION
     Dosage: 40 MG, QD
     Route: 048
  16. EXJADE [Suspect]
     Active Substance: DEFERASIROX
     Indication: HAEMATOLOGICAL MALIGNANCY
     Dosage: UNK
     Route: 042
     Dates: start: 201504, end: 201504
  17. FLUCONAZOLE. [Suspect]
     Active Substance: FLUCONAZOLE
     Indication: INFECTION PROPHYLAXIS
     Dosage: UNK
     Route: 048
     Dates: start: 201608, end: 201609
  18. IMOVANE [Suspect]
     Active Substance: ZOPICLONE
     Indication: PRODUCT USED FOR UNKNOWN INDICATION
     Dosage: 3.75 MG, QD
     Route: 048
  19. REVLIMID [Suspect]
     Active Substance: LENALIDOMIDE
     Indication: HAEMATOLOGICAL MALIGNANCY
     Dosage: UNK
     Route: 048
     Dates: start: 201408, end: 201504
  20. THYMOGLOBULIN [Suspect]
     Active Substance: LAPINE T-LYMPHOCYTE IMMUNE GLOBULIN
     Indication: HAEMATOLOGICAL MALIGNANCY
     Dosage: UNK
     Route: 042
     Dates: start: 201605

REACTIONS (1)
  - Polyneuropathy [Not Recovered/Not Resolved]

NARRATIVE: CASE EVENT DATE: 20170404
